FAERS Safety Report 4279384-3 (Version None)
Quarter: 2004Q1

REPORT INFORMATION
  Report Type: 
  Country: None (occurrence: None)
  Receive Date: 20040127
  Receipt Date: 20040107
  Transmission Date: 20041129
  Serious: Yes (Other)
  Sender: FDA-Public Use
  Company Number: WAES 0401USA00508

PATIENT
  Age: 68 Year
  Sex: Male

DRUGS (5)
  1. COREG [Concomitant]
  2. CLONIDINE [Concomitant]
  3. DIURETIC (UNSPECIFIED) [Concomitant]
  4. HYDRALAZINE [Concomitant]
  5. COZAAR [Suspect]
     Dates: start: 20020101

REACTIONS (1)
  - KIDNEY TRANSPLANT REJECTION [None]
